FAERS Safety Report 23517336 (Version 1)
Quarter: 2024Q1

REPORT INFORMATION
  Report Type: 
  Country: None (occurrence: None)
  Receive Date: 20240213
  Receipt Date: 20240213
  Transmission Date: 20240410
  Serious: No
  Sender: FDA-Public Use
  Company Number: MX-ROCHE-3507333

PATIENT
  Age: 51 Year
  Weight: 60 kg

DRUGS (1)
  1. RITUXIMAB [Suspect]
     Active Substance: RITUXIMAB
     Dates: start: 202206

REACTIONS (4)
  - Infected skin ulcer [None]
  - Ill-defined disorder [None]
  - Decubitus ulcer [None]
  - Off label use [None]

NARRATIVE: CASE EVENT DATE: 20220601
